FAERS Safety Report 25026050 (Version 1)
Quarter: 2025Q1

REPORT INFORMATION
  Report Type: Spontaneous
  Country: US (occurrence: US)
  Receive Date: 20250301
  Receipt Date: 20250301
  Transmission Date: 20250409
  Serious: No
  Sender: ELI LILLY AND COMPANY
  Company Number: US-ELI_LILLY_AND_COMPANY-US202502018163

PATIENT
  Age: 72 Year
  Sex: Male

DRUGS (3)
  1. LYUMJEV [Suspect]
     Active Substance: INSULIN LISPRO-AABC
     Indication: Product used for unknown indication
     Route: 065
     Dates: start: 2024
  2. LYUMJEV [Suspect]
     Active Substance: INSULIN LISPRO-AABC
     Route: 065
  3. TOUJEO [Concomitant]
     Active Substance: INSULIN GLARGINE
     Indication: Product used for unknown indication

REACTIONS (2)
  - Blood glucose increased [Unknown]
  - Drug ineffective [Unknown]
